FAERS Safety Report 7501767-6 (Version None)
Quarter: 2011Q2

REPORT INFORMATION
  Report Type: 
  Country: None (occurrence: None)
  Receive Date: 20110523
  Receipt Date: 20110523
  Transmission Date: 20111010
  Serious: Yes (Hospitalization)
  Sender: FDA-Public Use
  Company Number: None

PATIENT
  Age: 88 Year
  Sex: Male
  Weight: 81.4 kg

DRUGS (9)
  1. NORCO [Concomitant]
  2. AMIODARONE HCL [Concomitant]
  3. M.V.I. [Concomitant]
  4. ENABLEX [Concomitant]
  5. COUMADIN [Suspect]
     Indication: ATRIAL FIBRILLATION
     Dosage: 3 MG QPM PO CHRONIC
     Route: 048
  6. CALCIUM VIT D [Concomitant]
  7. FLOMAX [Concomitant]
  8. ASPIRIN [Suspect]
     Indication: CEREBROVASCULAR ACCIDENT
     Dosage: 81 MG DAILY PO CHRONIC
     Route: 048
  9. SERTRALINE HYDROCHLORIDE [Concomitant]

REACTIONS (3)
  - HEADACHE [None]
  - SUBDURAL HAEMATOMA [None]
  - FALL [None]
